FAERS Safety Report 22604233 (Version 2)
Quarter: 2023Q2

REPORT INFORMATION
  Report Type: Report from Study
  Country: US (occurrence: None)
  Receive Date: 20230615
  Receipt Date: 20230623
  Transmission Date: 20230721
  Serious: Yes (Death, Hospitalization)
  Sender: FDA-Public Use
  Company Number: US-ROCHE-2129172

PATIENT
  Age: 61 Year
  Sex: Female

DRUGS (25)
  1. VENETOCLAX [Suspect]
     Active Substance: VENETOCLAX
     Indication: B-cell lymphoma
     Route: 048
     Dates: start: 20180430, end: 20180514
  2. OBINUTUZUMAB [Suspect]
     Active Substance: OBINUTUZUMAB
     Indication: B-cell lymphoma
     Dosage: DAY 1 OF ECAH CYCLCE
     Route: 042
     Dates: start: 20180430
  3. LENALIDOMIDE [Suspect]
     Active Substance: LENALIDOMIDE
     Indication: B-cell lymphoma
     Dosage: DAY 1 AND 21
     Route: 048
     Dates: start: 20180430, end: 20180514
  4. ATIVAN [Suspect]
     Active Substance: LORAZEPAM
     Indication: Nausea
     Route: 065
  5. COMPAZINE [Suspect]
     Active Substance: PROCHLORPERAZINE MALEATE
     Indication: Nausea
     Route: 065
  6. ALBUTEROL [Concomitant]
     Active Substance: ALBUTEROL
     Dates: start: 20180322
  7. AMLODIPINE [Concomitant]
     Active Substance: AMLODIPINE BESYLATE
     Dosage: 2000 CURRENT
  8. DOCUSATE [Concomitant]
     Active Substance: DOCUSATE
     Dates: start: 20180206
  9. HYDROXYZINE [Concomitant]
     Active Substance: HYDROXYZINE HYDROCHLORIDE
     Dates: start: 20170317
  10. LOSARTAN [Concomitant]
     Active Substance: LOSARTAN
  11. MELATONIN [Concomitant]
     Active Substance: MELATONIN
     Dates: start: 20180202
  12. MORPHINE [Concomitant]
     Active Substance: MORPHINE
     Dates: start: 20180322
  13. FILGRASTIM [Concomitant]
     Active Substance: FILGRASTIM
     Dates: start: 20180423
  14. OLANZAPINE [Concomitant]
     Active Substance: OLANZAPINE
     Dates: start: 20180416
  15. ONDANSETRON [Concomitant]
     Active Substance: ONDANSETRON
     Dates: start: 20180413
  16. DULOXETINE [Concomitant]
     Active Substance: DULOXETINE
     Dates: start: 20180402
  17. VENLAFAXINE [Concomitant]
     Active Substance: VENLAFAXINE HYDROCHLORIDE
     Dates: start: 2008
  18. VALACYCLOVIR [Concomitant]
     Active Substance: VALACYCLOVIR HYDROCHLORIDE
     Dates: start: 20180225
  19. BACTRIM [Concomitant]
     Active Substance: SULFAMETHOXAZOLE\TRIMETHOPRIM
     Dates: start: 20180225
  20. SENNOSIDES [Concomitant]
     Active Substance: SENNOSIDES
     Dates: start: 20180206
  21. PROCHLORPERAZINE [Concomitant]
     Active Substance: PROCHLORPERAZINE
     Dates: start: 20180225
  22. POTASSIUM CHLORIDE [Concomitant]
     Active Substance: POTASSIUM CHLORIDE
     Dates: start: 20180301
  23. MIRALAX [Concomitant]
     Active Substance: POLYETHYLENE GLYCOL 3350
     Dates: start: 20180206
  24. OMEPRAZOLE [Concomitant]
     Active Substance: OMEPRAZOLE
  25. ALLOPURINOL [Concomitant]
     Active Substance: ALLOPURINOL
     Dates: start: 20180321

REACTIONS (3)
  - Nausea [Unknown]
  - Confusional state [Recovered/Resolved]
  - Respiratory failure [Fatal]

NARRATIVE: CASE EVENT DATE: 20180501
